FAERS Safety Report 20603492 (Version 1)
Quarter: 2022Q1

REPORT INFORMATION
  Report Type: Spontaneous
  Country: CN (occurrence: CN)
  Receive Date: 20220316
  Receipt Date: 20220316
  Transmission Date: 20220423
  Serious: Yes (Other)
  Sender: FDA-Public Use
  Company Number: CN-NOVARTISPH-NVSC2022CN060740

PATIENT

DRUGS (5)
  1. ISOSORBIDE MONONITRATE [Suspect]
     Active Substance: ISOSORBIDE MONONITRATE
     Indication: Angina unstable
     Dosage: 40 MG, QD
     Route: 048
  2. BENAZEPRIL HYDROCHLORIDE [Suspect]
     Active Substance: BENAZEPRIL HYDROCHLORIDE
     Indication: Angina unstable
     Dosage: 5 MG, QD
     Route: 048
  3. ASPIRIN [Suspect]
     Active Substance: ASPIRIN
     Indication: Angina unstable
     Dosage: 100 MG, QD, ENTERIC COATED TABLET
     Route: 048
  4. METOPROLOL SUCCINATE [Suspect]
     Active Substance: METOPROLOL SUCCINATE
     Indication: Angina unstable
     Dosage: 47.5 MG, QD
     Route: 048
  5. PITAVASTATIN CALCIUM [Suspect]
     Active Substance: PITAVASTATIN CALCIUM
     Indication: Angina unstable
     Dosage: 2 MG, QD
     Route: 048

REACTIONS (2)
  - Angina unstable [Unknown]
  - Product use in unapproved indication [Unknown]
